FAERS Safety Report 10076546 (Version 1)
Quarter: 2014Q2

REPORT INFORMATION
  Report Type: Spontaneous
  Country: US (occurrence: US)
  Receive Date: 20140414
  Receipt Date: 20140414
  Transmission Date: 20141212
  Serious: No
  Sender: FDA-Public Use
  Company Number: US-PFIZER INC-2014101007

PATIENT
  Age: 36 Year
  Sex: Female

DRUGS (3)
  1. NIFEDIPINE [Suspect]
     Indication: HYPERTENSION
     Dosage: UNK
  2. NIFEDIPINE [Suspect]
     Dosage: 30 MG, DAILY
     Dates: start: 20140405
  3. NIFEDIPINE [Suspect]
     Dosage: 60 MG, DAILY
     Dates: start: 20140406

REACTIONS (1)
  - Drug ineffective [Unknown]
